FAERS Safety Report 14012569 (Version 1)
Quarter: 2017Q3

REPORT INFORMATION
  Report Type: Spontaneous
  Country: US (occurrence: US)
  Receive Date: 20170926
  Receipt Date: 20170926
  Transmission Date: 20171128
  Serious: Yes (Death, Hospitalization, Other)
  Sender: FDA-Public Use
  Company Number: US-BRISTOL-MYERS SQUIBB COMPANY-BMS-2017-085600

PATIENT
  Sex: Female

DRUGS (1)
  1. OPDIVO [Suspect]
     Active Substance: NIVOLUMAB
     Indication: UTERINE CANCER
     Dosage: 240 MG, UNK
     Route: 042
     Dates: start: 20170316, end: 20170726

REACTIONS (3)
  - Product use in unapproved indication [Unknown]
  - Death [Fatal]
  - Hospitalisation [Unknown]
